FAERS Safety Report 7414916-5 (Version None)
Quarter: 2011Q2

REPORT INFORMATION
  Report Type: 
  Country: None (occurrence: None)
  Receive Date: 20110414
  Receipt Date: 20110107
  Transmission Date: 20111010
  Serious: Yes (Hospitalization)
  Sender: FDA-Public Use
  Company Number: US-BAYER-201035883NA

PATIENT
  Age: 27 Year
  Sex: Female
  Weight: 88.435 kg

DRUGS (7)
  1. AMOXICILLIN [Concomitant]
  2. NEXIUM [Concomitant]
  3. YASMIN [Suspect]
     Dates: start: 20020101, end: 20031201
  4. LORTAB [Concomitant]
  5. DILAUDID [Concomitant]
  6. FLEXERIL [Concomitant]
     Dosage: 10 MG, UNK
  7. ALLEGRA [Concomitant]

REACTIONS (1)
  - DEEP VEIN THROMBOSIS [None]
